FAERS Safety Report 23097689 (Version 1)
Quarter: 2023Q4

REPORT INFORMATION
  Report Type: Spontaneous
  Country: US (occurrence: None)
  Receive Date: 20231019
  Receipt Date: 20231019
  Transmission Date: 20240110
  Serious: Yes (Hospitalization)
  Sender: FDA-Public Use
  Company Number: None

PATIENT
  Age: 75 Year
  Sex: Male
  Weight: 94.3 kg

DRUGS (2)
  1. VENETOCLAX [Suspect]
     Active Substance: VENETOCLAX
     Dosage: FREQUENCY : DAILY;?
     Route: 048
     Dates: start: 20221104
  2. RIVAROXABAN [Suspect]
     Active Substance: RIVAROXABAN

REACTIONS (3)
  - Pancytopenia [None]
  - Asthenia [None]
  - Chest pain [None]

NARRATIVE: CASE EVENT DATE: 20221210
